FAERS Safety Report 7241731-8 (Version None)
Quarter: 2011Q1

REPORT INFORMATION
  Report Type: 
  Country: None (occurrence: None)
  Receive Date: 20110124
  Receipt Date: 20110111
  Transmission Date: 20110831
  Serious: Yes (Other)
  Sender: FDA-Public Use
  Company Number: US-WATSON-2011-00477

PATIENT

DRUGS (1)
  1. AMLODIPINE BESYLATE [Suspect]
     Indication: PRODUCT USED FOR UNKNOWN INDICATION
     Dosage: UNK

REACTIONS (5)
  - HYPOTENSION [None]
  - CONDUCTION DISORDER [None]
  - BRADYCARDIA [None]
  - ARRHYTHMIA [None]
  - HYPERGLYCAEMIA [None]
